FAERS Safety Report 10076691 (Version 2)
Quarter: 2014Q2

REPORT INFORMATION
  Report Type: Spontaneous
  Country: US (occurrence: US)
  Receive Date: 20140414
  Receipt Date: 20140529
  Transmission Date: 20141212
  Serious: Yes (Other)
  Sender: FDA-Public Use
  Company Number: US-GLAXOSMITHKLINE-A1069178A

PATIENT
  Sex: Female

DRUGS (18)
  1. BENLYSTA [Suspect]
     Indication: SYSTEMIC LUPUS ERYTHEMATOSUS
     Dosage: 120MG EVERY 28 DAYS
     Route: 065
     Dates: start: 2011
  2. PREDNISONE [Concomitant]
  3. PLAQUENIL [Concomitant]
  4. GABAPENTIN [Concomitant]
  5. AZATHIOPRINE [Concomitant]
  6. ONDANSETRON [Concomitant]
  7. ALPRAZOLAM [Concomitant]
  8. AMITRIPTYLINE [Concomitant]
  9. AMLODIPINE [Concomitant]
  10. ATENOLOL [Concomitant]
  11. CYCLOBENZAPRINE [Concomitant]
  12. ROBAXIN [Concomitant]
  13. OMEPRAZOLE [Concomitant]
  14. QUETIAPINE [Concomitant]
  15. VIVELLE [Concomitant]
  16. VESICARE [Concomitant]
  17. PRAZOSIN [Concomitant]
  18. HYDROMORPHONE [Concomitant]

REACTIONS (14)
  - Systemic lupus erythematosus [Not Recovered/Not Resolved]
  - Bladder operation [Not Recovered/Not Resolved]
  - Bronchitis [Unknown]
  - Back pain [Not Recovered/Not Resolved]
  - Condition aggravated [Not Recovered/Not Resolved]
  - Thirst [Not Recovered/Not Resolved]
  - Dry mouth [Not Recovered/Not Resolved]
  - Hysterectomy [Not Recovered/Not Resolved]
  - Hypoaesthesia [Unknown]
  - Movement disorder [Recovered/Resolved]
  - Weight increased [Recovering/Resolving]
  - Weight decreased [Unknown]
  - Arthralgia [Unknown]
  - Joint swelling [Unknown]
